FAERS Safety Report 14708268 (Version 2)
Quarter: 2018Q2

REPORT INFORMATION
  Report Type: Spontaneous
  Country: FR (occurrence: FR)
  Receive Date: 20180403
  Receipt Date: 20180615
  Transmission Date: 20180711
  Serious: Yes (Hospitalization)
  Sender: FDA-Public Use
  Company Number: FR-TEVA-2018-FR-875263

PATIENT
  Age: 56 Year
  Sex: Male
  Weight: 82 kg

DRUGS (17)
  1. APROVEL [Concomitant]
     Active Substance: IRBESARTAN
     Indication: HYPERTENSION
     Route: 048
  2. NOVORAPID [Concomitant]
     Active Substance: INSULIN ASPART
  3. PREVISCAN (FLUINDIONE) [Concomitant]
     Active Substance: FLUINDIONE
  4. KARDEGIC [Concomitant]
     Active Substance: ASPIRIN DL-LYSINE
  5. TERCIAN [Concomitant]
     Active Substance: CYAMEMAZINE
  6. LANTUS [Concomitant]
     Active Substance: INSULIN GLARGINE
  7. FLAGYL [Suspect]
     Active Substance: METRONIDAZOLE\METRONIDAZOLE HYDROCHLORIDE
     Indication: CLOSTRIDIUM DIFFICILE COLITIS
     Dosage: 1500 MILLIGRAM DAILY;
     Route: 048
     Dates: start: 20171104, end: 20171110
  8. VALIUM [Concomitant]
     Active Substance: DIAZEPAM
  9. STILNOX [Concomitant]
     Active Substance: ZOLPIDEM TARTRATE
  10. CEFTRIAXONE PANPHARMA [Suspect]
     Active Substance: CEFTRIAXONE
     Indication: BACTERIAL INFECTION
     Dosage: 2 GRAM DAILY;
     Route: 042
     Dates: start: 20170131, end: 20171103
  11. FUROSEMIDE. [Concomitant]
     Active Substance: FUROSEMIDE
  12. RAMIPRIL. [Suspect]
     Active Substance: RAMIPRIL
     Indication: HYPERTENSION
     Dosage: 5 MILLIGRAM DAILY;
     Route: 048
     Dates: start: 201606, end: 201712
  13. DIFICLIR 200 MG, COMPRIM? PELLICUL? [Suspect]
     Active Substance: FIDAXOMICIN
     Indication: CLOSTRIDIUM DIFFICILE COLITIS
     Dosage: 400 MILLIGRAM DAILY;
     Route: 048
     Dates: start: 20171102, end: 20171104
  14. INEXIUM [Concomitant]
     Active Substance: ESOMEPRAZOLE
  15. DULOXETINE BASE [Concomitant]
     Active Substance: DULOXETINE
  16. BISOPROLOL (FUMARATE ACIDE DE) [Concomitant]
     Active Substance: BISOPROLOL FUMARATE
  17. LYRICA [Concomitant]
     Active Substance: PREGABALIN

REACTIONS (1)
  - Drug reaction with eosinophilia and systemic symptoms [Recovering/Resolving]
